FAERS Safety Report 6161678-8 (Version None)
Quarter: 2009Q2

REPORT INFORMATION
  Report Type: 
  Country: None (occurrence: None)
  Receive Date: 20090421
  Receipt Date: 20090302
  Transmission Date: 20091009
  Serious: No
  Sender: FDA-Public Use
  Company Number: US-BAYER-200915988NA

PATIENT
  Age: 47 Year
  Sex: Male

DRUGS (1)
  1. MAGNEVIST PHRMACY BULK PACKAGE [Suspect]
     Indication: NUCLEAR MAGNETIC RESONANCE IMAGING
     Dosage: TOTAL DAILY DOSE: 15 ML  UNIT DOSE: 100 ML
     Route: 042
     Dates: start: 20090225, end: 20090225

REACTIONS (3)
  - NAUSEA [None]
  - SALIVARY HYPERSECRETION [None]
  - VOMITING [None]
